FAERS Safety Report 8217325-4 (Version None)
Quarter: 2012Q1

REPORT INFORMATION
  Report Type: 
  Country: None (occurrence: None)
  Receive Date: 20120313
  Receipt Date: 20120302
  Transmission Date: 20120608
  Serious: Yes (Hospitalization, Congenital Anomaly)
  Sender: FDA-Public Use
  Company Number: 2008JP005635

PATIENT
  Age: 35 Year
  Sex: Female
  Weight: 60 kg

DRUGS (25)
  1. TACROLIMUS [Suspect]
     Indication: LUPUS NEPHRITIS
     Dosage: 3 MG, UNKNOWN/D, ORAL; 2 MG, UNKNOWN/D, ORAL
     Route: 048
     Dates: start: 20070419, end: 20070530
  2. TACROLIMUS [Suspect]
     Indication: LUPUS NEPHRITIS
     Dosage: 3 MG, UNKNOWN/D, ORAL; 2 MG, UNKNOWN/D, ORAL
     Route: 048
     Dates: start: 20070531
  3. LOSARTAN POTASSIUM [Suspect]
     Dosage: 25 MG, UNKNOWN/D, ORAL; 50 MG, UNKNOWN/D, ORAL
     Route: 048
     Dates: start: 20080305, end: 20090911
  4. LOSARTAN POTASSIUM [Suspect]
     Dosage: 25 MG, UNKNOWN/D, ORAL; 50 MG, UNKNOWN/D, ORAL
     Route: 048
     Dates: end: 20080304
  5. ONE-ALPHA (ALFACALCIDOL) PER ORAL NOS [Suspect]
     Dosage: 0.5 UG, UNKNOWN/D, ORAL
     Route: 048
  6. LIPITOR [Suspect]
     Dosage: 5 MG, UNKNOWN/D, ORAL; 10 MG, UNKNOWN/D, ORAL
     Route: 048
     Dates: start: 20110912
  7. LIPITOR [Suspect]
     Dosage: 5 MG, UNKNOWN/D, ORAL; 10 MG, UNKNOWN/D, ORAL
     Route: 048
     Dates: end: 20090911
  8. LOSARTAN POTASSIUM AND HYDROCHLOROTHIAZIDE [Concomitant]
  9. TAGAMET [Suspect]
     Dosage: 200 MG, UNKNOWN/D, ORAL
     Route: 048
     Dates: end: 20080309
  10. ISONIAZID [Suspect]
     Dosage: 300 MG, UNKNOWN/D, ORAL
     Route: 048
     Dates: start: 20080229, end: 20080711
  11. REMICADE [Suspect]
     Indication: LUPUS NEPHRITIS
     Dosage: 200 MG, UNKNOWN/D, ORAL; 200 MG, UNKNOWN/D, ORAL
     Route: 048
     Dates: start: 20080314
  12. REMICADE [Suspect]
     Indication: LUPUS NEPHRITIS
     Dosage: 200 MG, UNKNOWN/D, ORAL; 200 MG, UNKNOWN/D, ORAL
     Route: 048
     Dates: start: 20080410
  13. REMICADE [Suspect]
     Indication: LUPUS NEPHRITIS
     Dosage: 200 MG, UNKNOWN/D, ORAL
     Route: 048
     Dates: start: 20080229
  14. PREDNISOLONE [Suspect]
     Indication: LUPUS NEPHRITIS
     Dosage: SEE IMAGE
     Route: 048
     Dates: start: 20090213, end: 20090807
  15. PREDNISOLONE [Suspect]
     Indication: LUPUS NEPHRITIS
     Dosage: SEE IMAGE
     Route: 048
     Dates: start: 20091010, end: 20091106
  16. PREDNISOLONE [Suspect]
     Indication: LUPUS NEPHRITIS
     Dosage: SEE IMAGE
     Route: 048
     Dates: end: 20070816
  17. PREDNISOLONE [Suspect]
     Indication: LUPUS NEPHRITIS
     Dosage: SEE IMAGE
     Route: 048
     Dates: start: 20070817, end: 20071206
  18. PREDNISOLONE [Suspect]
     Indication: LUPUS NEPHRITIS
     Dosage: SEE IMAGE
     Route: 048
     Dates: start: 20080105, end: 20080508
  19. PREDNISOLONE [Suspect]
     Indication: LUPUS NEPHRITIS
     Dosage: SEE IMAGE
     Route: 048
     Dates: start: 20080509, end: 20080711
  20. PREDNISOLONE [Suspect]
     Indication: LUPUS NEPHRITIS
     Dosage: SEE IMAGE
     Route: 048
     Dates: start: 20071207, end: 20080104
  21. PREDNISOLONE [Suspect]
     Indication: LUPUS NEPHRITIS
     Dosage: SEE IMAGE
     Route: 048
     Dates: start: 20080712, end: 20090212
  22. PREDNISOLONE [Suspect]
     Indication: LUPUS NEPHRITIS
     Dosage: SEE IMAGE
     Route: 048
     Dates: start: 20090808, end: 20091009
  23. PREDNISOLONE [Suspect]
     Indication: LUPUS NEPHRITIS
     Dosage: SEE IMAGE
     Route: 048
     Dates: start: 20091107, end: 20100115
  24. PREDNISOLONE [Suspect]
     Indication: LUPUS NEPHRITIS
     Dosage: SEE IMAGE
     Route: 048
     Dates: start: 20100116, end: 20100402
  25. PREDNISOLONE [Suspect]
     Indication: LUPUS NEPHRITIS
     Dosage: SEE IMAGE
     Route: 048
     Dates: start: 20100403

REACTIONS (17)
  - SYSTEMIC LUPUS ERYTHEMATOSUS [None]
  - LUPUS NEPHRITIS [None]
  - INCREASED APPETITE [None]
  - BLOOD CHOLESTEROL INCREASED [None]
  - WHITE BLOOD CELL COUNT DECREASED [None]
  - CONDITION AGGRAVATED [None]
  - MATERNAL EXPOSURE DURING PREGNANCY [None]
  - IRRITABILITY [None]
  - ABORTION MISSED [None]
  - PREGNANCY [None]
  - MUSCLE SPASMS [None]
  - IMMUNOSUPPRESSANT DRUG LEVEL DECREASED [None]
  - DRUG INEFFECTIVE [None]
  - PLATELET COUNT DECREASED [None]
  - RENAL IMPAIRMENT [None]
  - GLUCOSE URINE PRESENT [None]
  - BLOOD PRESSURE INCREASED [None]
